FAERS Safety Report 12200088 (Version 1)
Quarter: 2016Q1

REPORT INFORMATION
  Report Type: Spontaneous
  Country: US (occurrence: US)
  Receive Date: 20160322
  Receipt Date: 20160322
  Transmission Date: 20160526
  Serious: Yes (Other)
  Sender: FDA-Public Use
  Company Number: US-BAXTER-2016BAX013224

PATIENT
  Sex: Female

DRUGS (4)
  1. OXYTOCIN. [Suspect]
     Active Substance: OXYTOCIN
     Indication: PRODUCT USED FOR UNKNOWN INDICATION
     Dosage: ON ALARIS PUMP
     Route: 042
     Dates: start: 20151130, end: 20151130
  2. LACTATED RINGERS [Suspect]
     Active Substance: CALCIUM CHLORIDE\POTASSIUM CHLORIDE\SODIUM CHLORIDE\SODIUM LACTATE
     Dosage: ON ALARIS PUMP, THERAPY RESUMPTION
     Route: 042
  3. LACTATED RINGERS [Suspect]
     Active Substance: CALCIUM CHLORIDE\POTASSIUM CHLORIDE\SODIUM CHLORIDE\SODIUM LACTATE
     Indication: MEDICATION DILUTION
     Dosage: ON ALARIS PUMP
     Route: 042
     Dates: start: 20151130, end: 20151130
  4. OXYTOCIN. [Suspect]
     Active Substance: OXYTOCIN
     Dosage: ON ALARIS PUMP, THERAPY RESUMPTION
     Route: 042

REACTIONS (3)
  - Haemorrhage [Recovered/Resolved]
  - No adverse event [Recovered/Resolved]
  - Exposure during pregnancy [Unknown]

NARRATIVE: CASE EVENT DATE: 20151130
